FAERS Safety Report 6759813-3 (Version None)
Quarter: 2010Q2

REPORT INFORMATION
  Report Type: 
  Country: None (occurrence: None)
  Receive Date: 20100604
  Receipt Date: 20100525
  Transmission Date: 20101027
  Serious: Yes (Life-Threatening, Other)
  Sender: FDA-Public Use
  Company Number: 7006012

PATIENT
  Age: 33 Year
  Sex: Female
  Weight: 58 kg

DRUGS (4)
  1. REBIF [Suspect]
     Indication: MULTIPLE SCLEROSIS
     Dosage: 44 MCG, 3 IN 1 WK, SUBCUTANEOUS
     Route: 058
     Dates: start: 20081101, end: 20100521
  2. CONTRACEPTIF (CONTRACEPTIVES NO) [Concomitant]
  3. CARBOCISTEINE (CARBOCISTEINE) [Concomitant]
  4. CIPROFLOXACIN [Concomitant]

REACTIONS (2)
  - ANGIOEDEMA [None]
  - URTICARIA [None]
